FAERS Safety Report 10154240 (Version 1)
Quarter: 2014Q2

REPORT INFORMATION
  Report Type: Spontaneous
  Country: US (occurrence: US)
  Receive Date: 20140506
  Receipt Date: 20140506
  Transmission Date: 20141212
  Serious: No
  Sender: FDA-Public Use
  Company Number: US-PFIZER INC-2014118216

PATIENT
  Age: 57 Year
  Sex: Female

DRUGS (8)
  1. LYRICA [Suspect]
     Dosage: 75 MG, 2X/DAY
  2. CORTEF [Concomitant]
     Dosage: UNK
  3. VENTOLIN [Concomitant]
     Dosage: UNK
  4. SEREVENT [Concomitant]
     Dosage: UNK
  5. CRESTOR [Concomitant]
     Dosage: UNK
  6. DALIRESP [Concomitant]
     Dosage: UNK
  7. PULMICORT [Concomitant]
     Dosage: UNK
  8. NEXIUM [Concomitant]
     Dosage: UNK

REACTIONS (2)
  - Off label use [Unknown]
  - Drug hypersensitivity [Unknown]
